FAERS Safety Report 7947932-5 (Version None)
Quarter: 2011Q4

REPORT INFORMATION
  Report Type: 
  Country: None (occurrence: None)
  Receive Date: 20111125
  Receipt Date: 20111117
  Transmission Date: 20120403
  Serious: Yes (Other)
  Sender: FDA-Public Use
  Company Number: GER/GER/11/0022017

PATIENT
  Age: 31 Year
  Sex: Female
  Weight: 77 kg

DRUGS (4)
  1. SERTRALINE HYDROCHLORIDE [Suspect]
     Indication: DEPRESSION
     Dosage: 75 MG, 1 IN 1 D, ORAL
     Route: 048
     Dates: start: 20101220, end: 20110118
  2. LORAZEPAM [Concomitant]
  3. FOLIO FORTE (FOLIO) [Concomitant]
  4. DIMENHYDRINATE [Concomitant]

REACTIONS (2)
  - CAESAREAN SECTION [None]
  - MATERNAL EXPOSURE DURING PREGNANCY [None]
